FAERS Safety Report 21932270 (Version 1)
Quarter: 2023Q1

REPORT INFORMATION
  Report Type: Spontaneous
  Country: US (occurrence: None)
  Receive Date: 20230131
  Receipt Date: 20230131
  Transmission Date: 20230417
  Serious: No
  Sender: FDA-Public Use
  Company Number: None

PATIENT
  Age: 71 Year
  Sex: Male

DRUGS (1)
  1. ATORVASTATIN [Suspect]
     Active Substance: ATORVASTATIN
     Indication: Hyperlipidaemia
     Dosage: OTHER FREQUENCY : BEDTIME ;?
     Route: 048
     Dates: start: 20220328, end: 20221024

REACTIONS (3)
  - Myalgia [None]
  - Mobility decreased [None]
  - Arthralgia [None]

NARRATIVE: CASE EVENT DATE: 20221024
